FAERS Safety Report 5942512-5 (Version None)
Quarter: 2008Q4

REPORT INFORMATION
  Report Type: 
  Country: None (occurrence: None)
  Receive Date: 20081105
  Receipt Date: 20081024
  Transmission Date: 20090506
  Serious: Yes (Other)
  Sender: FDA-Public Use
  Company Number: CN-PFIZER INC-2008091020

PATIENT
  Age: 84 Year
  Sex: Female

DRUGS (1)
  1. CEFOPERAZONE SODIUM [Suspect]
     Indication: PYREXIA
     Route: 042
     Dates: start: 20051101, end: 20051101

REACTIONS (3)
  - AGGRESSION [None]
  - MANIA [None]
  - PERSONALITY DISORDER [None]
